FAERS Safety Report 18136200 (Version 2)
Quarter: 2020Q3

REPORT INFORMATION
  Report Type: Spontaneous
  Country: RU (occurrence: RU)
  Receive Date: 20200811
  Receipt Date: 20200826
  Transmission Date: 20201103
  Serious: Yes (Other)
  Sender: FDA-Public Use
  Company Number: RU-TEVA-2020-RU-1814122

PATIENT
  Age: 31 Year
  Sex: Female

DRUGS (3)
  1. BENDAMUSTINE HYDROCHLORIDE. [Suspect]
     Active Substance: BENDAMUSTINE HYDROCHLORIDE
     Indication: BREAST IMPLANT-ASSOCIATED ANAPLASTIC LARGE CELL LYMPHOMA
     Dosage: (D1, D2)
     Route: 042
     Dates: start: 201803
  2. BRENTUXIMAB VEDOTIN [Concomitant]
     Active Substance: BRENTUXIMAB VEDOTIN
     Indication: BREAST IMPLANT-ASSOCIATED ANAPLASTIC LARGE CELL LYMPHOMA
     Dosage: (D1 OF EACH 28?DAY CYCLE)
     Route: 065
     Dates: start: 201803
  3. BENDAMUSTINE HYDROCHLORIDE. [Suspect]
     Active Substance: BENDAMUSTINE HYDROCHLORIDE
     Route: 042
     Dates: start: 2018

REACTIONS (2)
  - Pulmonary toxicity [Unknown]
  - Product use in unapproved indication [Unknown]

NARRATIVE: CASE EVENT DATE: 2018
